FAERS Safety Report 22746734 (Version 2)
Quarter: 2024Q1

REPORT INFORMATION
  Report Type: Other
  Country: IT (occurrence: IT)
  Receive Date: 20230725
  Receipt Date: 20240131
  Transmission Date: 20240409
  Serious: Yes (Hospitalization, Other)
  Sender: FDA-Public Use
  Company Number: IT-MACLEODS PHARMACEUTICALS US LTD-MAC2023042544

PATIENT

DRUGS (4)
  1. ESCITALOPRAM [Suspect]
     Active Substance: ESCITALOPRAM OXALATE
     Indication: Product used for unknown indication
     Dosage: UNK (NOT KNOWN QUANTITY)
     Route: 048
     Dates: start: 20230119
  2. QUETIAPINE [Suspect]
     Active Substance: QUETIAPINE
     Indication: Product used for unknown indication
     Dosage: 550 MILLIGRAM, QD (QUETIAPINE 250MG (10 TABLETS OF 25MG) + 300MG (6 TABLETS OF 50MG))
     Route: 048
     Dates: start: 20230119, end: 20230119
  3. BROMAZEPAM\PROPANTHELINE BROMIDE [Suspect]
     Active Substance: BROMAZEPAM\PROPANTHELINE BROMIDE
     Indication: Product used for unknown indication
     Dosage: 90 MILLIGRAM (15 CP (90MG))
     Route: 048
  4. ACETAMINOPHEN\CODEINE PHOSPHATE [Suspect]
     Active Substance: ACETAMINOPHEN\CODEINE PHOSPHATE
     Indication: Product used for unknown indication
     Dosage: 4 GRAM
     Route: 048
     Dates: start: 20230119

REACTIONS (5)
  - Sopor [Unknown]
  - Acidosis [Unknown]
  - Intentional self-injury [Unknown]
  - Hypotension [Unknown]
  - Drug abuse [Unknown]

NARRATIVE: CASE EVENT DATE: 20230119
